FAERS Safety Report 4375750-6 (Version None)
Quarter: 2004Q2

REPORT INFORMATION
  Report Type: 
  Country: None (occurrence: None)
  Receive Date: 20040610
  Receipt Date: 20040607
  Transmission Date: 20050107
  Serious: Yes (Other)
  Sender: FDA-Public Use
  Company Number: US-BRISTOL-MYERS SQUIBB COMPANY-12607123

PATIENT
  Age: 70 Year
  Sex: Female
  Weight: 74 kg

DRUGS (5)
  1. ERBITUX [Suspect]
     Indication: COLON CANCER METASTATIC
     Route: 042
     Dates: start: 20040501, end: 20040501
  2. BENADRYL [Concomitant]
     Indication: PREMEDICATION
     Route: 042
     Dates: start: 20040501, end: 20040501
  3. CARDIZEM [Concomitant]
  4. LOPRESSOR [Concomitant]
  5. MAXZIDE [Concomitant]

REACTIONS (6)
  - ACNE [None]
  - CHILLS [None]
  - COLON CANCER METASTATIC [None]
  - CONVULSION [None]
  - NAIL DISORDER [None]
  - TREMOR [None]
